FAERS Safety Report 4448482-3 (Version None)
Quarter: 2004Q3

REPORT INFORMATION
  Report Type: 
  Country: None (occurrence: None)
  Receive Date: 20040909
  Receipt Date: 20040909
  Transmission Date: 20050211
  Serious: Yes (Other)
  Sender: FDA-Public Use
  Company Number: None

PATIENT
  Age: 47 Year
  Sex: Male
  Weight: 81.6475 kg

DRUGS (2)
  1. KETEK [Suspect]
     Indication: BRONCHITIS
     Dates: start: 20040823, end: 20040828
  2. LIPITOR [Suspect]
     Indication: HYPERCHOLESTEROLAEMIA
     Dates: start: 20040316, end: 20040823

REACTIONS (1)
  - BLOOD CREATINE PHOSPHOKINASE INCREASED [None]
